FAERS Safety Report 12194803 (Version 1)
Quarter: 2016Q1

REPORT INFORMATION
  Report Type: Spontaneous
  Country: US (occurrence: US)
  Receive Date: 20160321
  Receipt Date: 20160321
  Transmission Date: 20160526
  Serious: Yes (Hospitalization, Other)
  Sender: FDA-Public Use
  Company Number: US-GLAXOSMITHKLINE-US2016038367

PATIENT
  Sex: Female

DRUGS (18)
  1. FIBERCON [Concomitant]
     Active Substance: CALCIUM POLYCARBOPHIL
  2. REQUIP [Concomitant]
     Active Substance: ROPINIROLE HYDROCHLORIDE
  3. CALCIUM [Concomitant]
     Active Substance: CALCIUM
  4. CARAFATE [Concomitant]
     Active Substance: SUCRALFATE
  5. COUMADIN [Concomitant]
     Active Substance: WARFARIN SODIUM
  6. IRON [Concomitant]
     Active Substance: IRON
  7. TRAMADOL. [Concomitant]
     Active Substance: TRAMADOL
  8. BREO ELLIPTA [Suspect]
     Active Substance: FLUTICASONE FUROATE\VILANTEROL TRIFENATATE
     Indication: CHRONIC OBSTRUCTIVE PULMONARY DISEASE
     Dosage: 100MCG/25MCG
     Route: 055
  9. KLOR-CON [Concomitant]
     Active Substance: POTASSIUM CHLORIDE
  10. ZOCOR [Concomitant]
     Active Substance: SIMVASTATIN
  11. LISINOPRIL. [Concomitant]
     Active Substance: LISINOPRIL
  12. LASIX [Concomitant]
     Active Substance: FUROSEMIDE
  13. PRILOSEC [Concomitant]
     Active Substance: OMEPRAZOLE MAGNESIUM
  14. XANAX [Concomitant]
     Active Substance: ALPRAZOLAM
  15. ASPIRIN (BABY) [Concomitant]
     Active Substance: ASPIRIN
  16. METOPROLOL. [Concomitant]
     Active Substance: METOPROLOL
  17. CRANBERRY TABLETS [Concomitant]
  18. LEVBID [Concomitant]
     Active Substance: HYOSCYAMINE SULFATE

REACTIONS (7)
  - Gastric dilatation [Recovering/Resolving]
  - Oral pain [Unknown]
  - Gastrointestinal disorder [Recovering/Resolving]
  - Hospitalisation [Unknown]
  - Thrombosis prophylaxis [Recovering/Resolving]
  - Circulatory collapse [Recovering/Resolving]
  - Volume blood decreased [Unknown]
